FAERS Safety Report 4811262-0 (Version None)
Quarter: 2005Q4

REPORT INFORMATION
  Report Type: 
  Country: None (occurrence: None)
  Receive Date: 20051027
  Receipt Date: 20050812
  Transmission Date: 20060501
  Serious: Yes (Life-Threatening, Hospitalization)
  Sender: FDA-Public Use
  Company Number: US-BRISTOL-MYERS SQUIBB COMPANY-13077631

PATIENT
  Age: 59 Year
  Sex: Male

DRUGS (15)
  1. CISPLATIN [Suspect]
     Indication: LUNG CANCER METASTATIC
     Route: 042
     Dates: start: 20050728, end: 20050728
  2. GEMZAR [Suspect]
     Indication: LUNG CANCER METASTATIC
     Route: 042
     Dates: start: 20050804, end: 20050804
  3. EPOETIN ALFA [Concomitant]
     Dates: start: 20050728
  4. NEUMEGA [Concomitant]
     Dates: start: 20050811, end: 20050812
  5. NEUPOGEN [Concomitant]
     Dates: start: 20050728
  6. INSULIN [Concomitant]
  7. AVANDIA [Concomitant]
  8. GLIPIZIDE [Concomitant]
  9. IMDUR [Concomitant]
  10. ALBUTEROL [Concomitant]
  11. GLUCOPHAGE XR [Concomitant]
  12. POTASSIUM [Concomitant]
  13. MAGNESIUM OXIDE [Concomitant]
  14. PAXIL [Concomitant]
  15. CARDIZEM CD [Concomitant]

REACTIONS (2)
  - HYPOTENSION [None]
  - SUPRAVENTRICULAR TACHYCARDIA [None]
